FAERS Safety Report 10515399 (Version 1)
Quarter: 2014Q3

REPORT INFORMATION
  Report Type: Spontaneous
  Country: US (occurrence: None)
  Receive Date: 20140926
  Receipt Date: 20140926
  Transmission Date: 20150326
  Serious: No
  Sender: FDA-Public Use
  Company Number: 1000070181

PATIENT
  Age: 55 Year
  Sex: Male

DRUGS (8)
  1. LINZESS [Suspect]
     Active Substance: LINACLOTIDE
     Indication: CONSTIPATION
     Route: 048
     Dates: start: 20140821
  2. NASAL SPRAY NOS [Concomitant]
  3. LINZESS [Suspect]
     Active Substance: LINACLOTIDE
     Indication: FLATULENCE
     Route: 048
     Dates: start: 20140821
  4. GAS RELIEF TABLETS [Concomitant]
  5. LORAZEPAM. [Concomitant]
     Active Substance: LORAZEPAM
  6. LINZESS [Suspect]
     Active Substance: LINACLOTIDE
     Indication: ABDOMINAL DISTENSION
     Route: 048
     Dates: start: 20140821
  7. BEANO (ALPHA-D-GALACTOSIDASE) [Concomitant]
  8. CLARITIN [Concomitant]
     Active Substance: LORATADINE

REACTIONS (3)
  - Abdominal discomfort [None]
  - Off label use [None]
  - Diarrhoea [None]

NARRATIVE: CASE EVENT DATE: 201408
